FAERS Safety Report 7896718-9 (Version None)
Quarter: 2011Q4

REPORT INFORMATION
  Report Type: 
  Country: None (occurrence: None)
  Receive Date: 20111104
  Receipt Date: 20111104
  Transmission Date: 20120403
  Serious: Yes (Other)
  Sender: FDA-Public Use
  Company Number: None

PATIENT
  Sex: Female
  Weight: 57.6068 kg

DRUGS (2)
  1. BONIVA [Suspect]
     Indication: OSTEOPENIA
     Dosage: 150 MG 1 PER MONTH MOUTH
     Route: 048
     Dates: start: 20110717
  2. BONIVA [Suspect]
     Indication: OSTEOPENIA
     Dosage: 150 MG 1 PER MONTH MOUTH
     Route: 048
     Dates: start: 20110617

REACTIONS (6)
  - MUSCULOSKELETAL PAIN [None]
  - ACTIVITIES OF DAILY LIVING IMPAIRED [None]
  - DEPRESSION [None]
  - JOINT SWELLING [None]
  - INFLUENZA LIKE ILLNESS [None]
  - PAIN [None]
